FAERS Safety Report 9895787 (Version 2)
Quarter: 2014Q1

REPORT INFORMATION
  Report Type: Spontaneous
  Country: US (occurrence: US)
  Receive Date: 20140213
  Receipt Date: 20140213
  Transmission Date: 20141002
  Serious: No
  Sender: FDA-Public Use
  Company Number: US-BRISTOL-MYERS SQUIBB COMPANY-19480136

PATIENT
  Age: 56 Year
  Sex: Female
  Weight: 83.9 kg

DRUGS (8)
  1. ABATACEPT SUBQ INJECTION 125MG/ML [Suspect]
     Indication: RHEUMATOID ARTHRITIS
     Dosage: 1DF=125 MG/ML?LAST DOSE ON 25SEP13
     Route: 058
     Dates: start: 20121109, end: 20130916
  2. PREDNISONE [Concomitant]
  3. NEXIUM [Concomitant]
  4. VICODIN [Concomitant]
  5. LISINOPRIL [Concomitant]
  6. CELEXA [Concomitant]
  7. KLONOPIN [Concomitant]
  8. GABAPENTIN [Concomitant]

REACTIONS (1)
  - Drug ineffective [Unknown]
